FAERS Safety Report 24822223 (Version 2)
Quarter: 2025Q1

REPORT INFORMATION
  Report Type: Spontaneous
  Country: US (occurrence: US)
  Receive Date: 20250108
  Receipt Date: 20250327
  Transmission Date: 20250409
  Serious: No
  Sender: BLUEPRINT MEDICINES
  Company Number: US-Blueprint Medicines Corporation-2025-AER-00019

PATIENT
  Age: 19 Year
  Sex: Female

DRUGS (3)
  1. AYVAKIT [Suspect]
     Active Substance: AVAPRITINIB
     Indication: Indolent systemic mastocytosis
     Dates: start: 20230626
  2. AYVAKIT [Suspect]
     Active Substance: AVAPRITINIB
     Route: 065
  3. AYVAKIT [Suspect]
     Active Substance: AVAPRITINIB
     Route: 065
     Dates: start: 202405

REACTIONS (5)
  - Blood creatine phosphokinase abnormal [Unknown]
  - Aldolase increased [Unknown]
  - Splenomegaly [Recovering/Resolving]
  - Myalgia [Unknown]
  - Myositis [Unknown]

NARRATIVE: CASE EVENT DATE: 20241122
